FAERS Safety Report 6691356-8 (Version None)
Quarter: 2010Q2

REPORT INFORMATION
  Report Type: 
  Country: None (occurrence: None)
  Receive Date: 20100422
  Receipt Date: 20100408
  Transmission Date: 20101027
  Serious: Yes (Hospitalization)
  Sender: FDA-Public Use
  Company Number: FR-CELGENEUS-056-C5013-10020222

PATIENT
  Sex: Male
  Weight: 83 kg

DRUGS (7)
  1. CC-5013 [Suspect]
     Indication: MANTLE CELL LYMPHOMA REFRACTORY
     Route: 048
     Dates: start: 20100112, end: 20100130
  2. ALLOPURINOL [Suspect]
     Indication: DRUG USE FOR UNKNOWN INDICATION
     Route: 065
     Dates: start: 20100112, end: 20100118
  3. AVK [Concomitant]
     Indication: DRUG USE FOR UNKNOWN INDICATION
     Route: 065
  4. PREVISCAN [Concomitant]
     Indication: DRUG USE FOR UNKNOWN INDICATION
     Route: 065
  5. DIFFU K [Concomitant]
     Indication: DRUG USE FOR UNKNOWN INDICATION
     Route: 065
  6. MORPAL 20 [Concomitant]
     Indication: DRUG USE FOR UNKNOWN INDICATION
     Route: 065
  7. CACIT D3 [Concomitant]
     Indication: DRUG USE FOR UNKNOWN INDICATION
     Route: 065

REACTIONS (1)
  - DRUG RASH WITH EOSINOPHILIA AND SYSTEMIC SYMPTOMS [None]
